FAERS Safety Report 17549662 (Version 1)
Quarter: 2020Q1

REPORT INFORMATION
  Report Type: Spontaneous
  Country: US (occurrence: US)
  Receive Date: 20200317
  Receipt Date: 20200317
  Transmission Date: 20200409
  Serious: Yes (Death, Hospitalization, Other)
  Sender: FDA-Public Use
  Company Number: NVSC2020US075241

PATIENT
  Age: 65 Year
  Sex: Female

DRUGS (4)
  1. MIRTAZAPINE. [Suspect]
     Active Substance: MIRTAZAPINE
     Indication: PRODUCT USED FOR UNKNOWN INDICATION
     Dosage: UNK, SEVEN PILLS
     Route: 065
  2. VALPROATE [Suspect]
     Active Substance: VALPROIC ACID
     Indication: PRODUCT USED FOR UNKNOWN INDICATION
     Dosage: UNK, SEVEN PILLS
     Route: 065
  3. QUETIAPINE. [Suspect]
     Active Substance: QUETIAPINE
     Indication: PRODUCT USED FOR UNKNOWN INDICATION
     Dosage: UNK, SEVEN PILLS
     Route: 065
  4. RANOLAZINE. [Suspect]
     Active Substance: RANOLAZINE
     Indication: PRODUCT USED FOR UNKNOWN INDICATION
     Dosage: 1000 MG, 50 TABLETS
     Route: 065

REACTIONS (11)
  - Somnolence [Unknown]
  - Bradycardia [Unknown]
  - Electrocardiogram QT prolonged [Unknown]
  - Hypoxia [Unknown]
  - Toxicity to various agents [Fatal]
  - Hypotension [Unknown]
  - Tonic clonic movements [Unknown]
  - Cardiac arrest [Unknown]
  - Overdose [Fatal]
  - Hyperhidrosis [Unknown]
  - Pulmonary oedema [Unknown]
